FAERS Safety Report 4599267-9 (Version None)
Quarter: 2005Q1

REPORT INFORMATION
  Report Type: 
  Country: None (occurrence: None)
  Receive Date: 20050302
  Receipt Date: 20050302
  Transmission Date: 20050727
  Serious: No
  Sender: FDA-Public Use
  Company Number: None

PATIENT
  Age: 48 Year
  Sex: Female
  Weight: 45.3597 kg

DRUGS (2)
  1. ZOLOFT [Suspect]
     Indication: AFFECTIVE DISORDER
     Dosage: 1 TAB ONCE A DAY ORAL
     Route: 048
     Dates: start: 20040922, end: 20041010
  2. ZOLOFT [Suspect]
     Indication: MIGRAINE
     Dosage: 1 TAB ONCE A DAY ORAL
     Route: 048
     Dates: start: 20040922, end: 20041010

REACTIONS (4)
  - HALLUCINATION, AUDITORY [None]
  - HALLUCINATION, TACTILE [None]
  - HALLUCINATION, VISUAL [None]
  - PHOBIA [None]
